FAERS Safety Report 23860852 (Version 1)
Quarter: 2024Q2

REPORT INFORMATION
  Report Type: Other
  Country: IE (occurrence: None)
  Receive Date: 20240516
  Receipt Date: 20240516
  Transmission Date: 20240715
  Serious: No
  Sender: FDA-Public Use
  Company Number: IE-ROCHE-3563894

PATIENT
  Sex: Female

DRUGS (1)
  1. OCREVUS [Suspect]
     Active Substance: OCRELIZUMAB
     Indication: Multiple sclerosis
     Route: 042

REACTIONS (1)
  - Herpes zoster [Recovered/Resolved]
